FAERS Safety Report 14385570 (Version 1)
Quarter: 2018Q1

REPORT INFORMATION
  Report Type: Spontaneous
  Country: US (occurrence: US)
  Receive Date: 20180115
  Receipt Date: 20180115
  Transmission Date: 20180509
  Serious: Yes (Other)
  Sender: FDA-Public Use
  Company Number: US-SA-2016SA234137

PATIENT
  Age: 44 Year
  Sex: Female
  Weight: 84.36 kg

DRUGS (5)
  1. IMITREX [Concomitant]
     Active Substance: SUMATRIPTAN SUCCINATE
     Route: 065
     Dates: start: 20110101
  2. TAXOTERE [Suspect]
     Active Substance: DOCETAXEL
     Indication: INVASIVE DUCTAL BREAST CARCINOMA
     Route: 051
     Dates: start: 20150827, end: 20150827
  3. TAXOTERE [Suspect]
     Active Substance: DOCETAXEL
     Indication: INVASIVE DUCTAL BREAST CARCINOMA
     Route: 051
     Dates: start: 20150505, end: 20150505
  4. TRAMADOL. [Concomitant]
     Active Substance: TRAMADOL
     Route: 065
     Dates: start: 20130101
  5. CAMBIA [Concomitant]
     Active Substance: DICLOFENAC POTASSIUM
     Route: 065
     Dates: start: 20130101

REACTIONS (6)
  - Alopecia [Not Recovered/Not Resolved]
  - Anxiety [Unknown]
  - Pain [Unknown]
  - Impaired quality of life [Unknown]
  - Emotional distress [Unknown]
  - Psychological trauma [Unknown]

NARRATIVE: CASE EVENT DATE: 201505
